FAERS Safety Report 5268454-9 (Version None)
Quarter: 2007Q1

REPORT INFORMATION
  Report Type: 
  Country: None (occurrence: None)
  Receive Date: 20070319
  Receipt Date: 20070310
  Transmission Date: 20070707
  Serious: Yes (Hospitalization)
  Sender: FDA-Public Use
  Company Number: GB-AVENTIS-200712271GDDC

PATIENT
  Sex: Female

DRUGS (2)
  1. LANTUS [Suspect]
     Route: 058
  2. HUMALOG                            /00030501/ [Concomitant]

REACTIONS (3)
  - ANGINA PECTORIS [None]
  - BLOOD GLUCOSE INCREASED [None]
  - BLOOD KETONE BODY INCREASED [None]
